FAERS Safety Report 8334173-5 (Version None)
Quarter: 2012Q2

REPORT INFORMATION
  Report Type: 
  Country: None (occurrence: None)
  Receive Date: 20120503
  Receipt Date: 20120417
  Transmission Date: 20120825
  Serious: No
  Sender: FDA-Public Use
  Company Number: TR-GLAXOSMITHKLINE-B0797431A

PATIENT
  Sex: Female
  Weight: 52 kg

DRUGS (1)
  1. NIQUITIN 4 MG MINT LOZENGE [Suspect]
     Indication: EX-TOBACCO USER
     Route: 065
     Dates: start: 20120304, end: 20120417

REACTIONS (2)
  - HYPERCHLORHYDRIA [None]
  - DYSPEPSIA [None]
